FAERS Safety Report 7468946-8 (Version None)
Quarter: 2011Q2

REPORT INFORMATION
  Report Type: 
  Country: None (occurrence: None)
  Receive Date: 20110412
  Receipt Date: 20110329
  Transmission Date: 20111010
  Serious: Yes (Death)
  Sender: FDA-Public Use
  Company Number: B0710908A

PATIENT

DRUGS (2)
  1. MELPHALAN HYDROCHLORIDE [Suspect]
     Indication: MULTIPLE MYELOMA
     Dosage: 200 MG/M2
  2. AMIFOSTINE [Suspect]
     Indication: MULTIPLE MYELOMA
     Dosage: 1000 MG

REACTIONS (1)
  - PNEUMONIA [None]
